FAERS Safety Report 24982664 (Version 1)
Quarter: 2025Q1

REPORT INFORMATION
  Report Type: Spontaneous
  Country: IR (occurrence: IR)
  Receive Date: 20250218
  Receipt Date: 20250218
  Transmission Date: 20250408
  Serious: Yes (Other)
  Sender: ASCENT PHARMACEUTICALS INC
  Company Number: IR-ASCENT-2025ASLIT00016

PATIENT
  Sex: Male

DRUGS (1)
  1. SERTRALINE HYDROCHLORIDE [Suspect]
     Active Substance: SERTRALINE HYDROCHLORIDE
     Indication: Depression
     Route: 064

REACTIONS (3)
  - Ductus arteriosus stenosis foetal [Recovered/Resolved]
  - Foetal exposure during pregnancy [Unknown]
  - Exposure during pregnancy [None]
